FAERS Safety Report 7073412-8 (Version None)
Quarter: 2010Q4

REPORT INFORMATION
  Report Type: 
  Country: None (occurrence: None)
  Receive Date: 20101029
  Receipt Date: 20100614
  Transmission Date: 20110411
  Serious: No
  Sender: FDA-Public Use
  Company Number: A0865014A

PATIENT
  Sex: Female

DRUGS (4)
  1. ADVAIR DISKUS 100/50 [Suspect]
     Indication: ASTHMA
     Route: 055
  2. ALBUTEROL [Concomitant]
  3. TRAMADOL [Concomitant]
  4. CORVITA [Concomitant]

REACTIONS (3)
  - COUGH [None]
  - PERTUSSIS [None]
  - SECRETION DISCHARGE [None]
